FAERS Safety Report 15689689 (Version 2)
Quarter: 2024Q4

REPORT INFORMATION
  Report Type: Spontaneous
  Country: US (occurrence: US)
  Receive Date: 20181205
  Receipt Date: 20241206
  Transmission Date: 20250115
  Serious: No
  Sender: NOVO NORDISK
  Company Number: US-NOVOPROD-621410

PATIENT
  Sex: Female

DRUGS (1)
  1. NOVOLIN R [Suspect]
     Active Substance: INSULIN HUMAN
     Indication: Product used for unknown indication
     Dosage: 10 U, UNK
     Route: 058

REACTIONS (4)
  - Feeling abnormal [Unknown]
  - Tremor [Unknown]
  - Hypoglycaemia [Unknown]
  - Intentional product misuse [Unknown]
